FAERS Safety Report 8851390 (Version 2)
Quarter: 2015Q3

REPORT INFORMATION
  Report Type: Report from Study
  Country: US (occurrence: US)
  Receive Date: 20121022
  Receipt Date: 20150813
  Transmission Date: 20151125
  Serious: Yes (Disabling, Other)
  Sender: FDA-Public Use
  Company Number: US-ROCHE-1120073

PATIENT
  Age: 37 Year
  Sex: Male

DRUGS (2)
  1. NUTROPIN AQ [Suspect]
     Active Substance: SOMATROPIN
     Route: 058
  2. NUTROPIN AQ [Suspect]
     Active Substance: SOMATROPIN
     Indication: DWARFISM
     Route: 058

REACTIONS (7)
  - Weight increased [Unknown]
  - Seizure [Unknown]
  - Loss of consciousness [Unknown]
  - Asthenia [Unknown]
  - Fatigue [Unknown]
  - Blood glucose decreased [Unknown]
  - Disability [Unknown]

NARRATIVE: CASE EVENT DATE: 199812
